FAERS Safety Report 6766743-X (Version None)
Quarter: 2010Q2

REPORT INFORMATION
  Report Type: 
  Country: None (occurrence: None)
  Receive Date: 20100609
  Receipt Date: 20080313
  Transmission Date: 20101027
  Serious: Yes (Hospitalization)
  Sender: FDA-Public Use
  Company Number: LEO-2010-00465

PATIENT
  Sex: Female
  Weight: 3.4 kg

DRUGS (4)
  1. INNOHEP [Suspect]
     Indication: DRUG EXPOSURE DURING PREGNANCY
     Dosage: TRANSPLACENTAL
     Route: 064
     Dates: start: 20060120, end: 20060416
  2. AUGMENTIN '125' [Concomitant]
  3. CO AMOXICLAV (AMOXICILLIN, CLAVULANATE POTASSIUM) [Concomitant]
  4. DEXAMETHASONE [Concomitant]

REACTIONS (2)
  - MATERNAL DRUGS AFFECTING FOETUS [None]
  - PREMATURE BABY [None]
